FAERS Safety Report 4688527-9 (Version None)
Quarter: 2005Q2

REPORT INFORMATION
  Report Type: 
  Country: None (occurrence: None)
  Receive Date: 20050613
  Receipt Date: 20050523
  Transmission Date: 20051028
  Serious: Yes (Other)
  Sender: FDA-Public Use
  Company Number: FR-RB-1693-2005

PATIENT
  Age: 39 Year
  Sex: Male
  Weight: 100 kg

DRUGS (8)
  1. BUPRENORPHINE HCL [Suspect]
     Indication: DRUG DEPENDENCE
     Route: 048
     Dates: start: 19960615, end: 20050413
  2. BUPRENORPHINE HCL [Suspect]
     Dosage: ANTALGIC INDICATION
     Route: 065
     Dates: start: 20050414
  3. ALCOHOL [Suspect]
     Dosage: DOSAGE UNKNOWN
     Route: 065
     Dates: end: 20050223
  4. ACETYLCYSTEINE [Concomitant]
     Route: 065
     Dates: start: 20050401
  5. ALPRAZOLAM [Concomitant]
     Route: 048
  6. CLOMIPRAMINE HCL [Concomitant]
     Route: 065
     Dates: start: 20050301
  7. CLORAZEPATE DIPOTASSIUM [Concomitant]
     Route: 065
  8. VENLAFAXINE HCL [Concomitant]
     Route: 048

REACTIONS (8)
  - ABSCESS [None]
  - ARTHRALGIA [None]
  - INTENTIONAL MISUSE [None]
  - INTERVERTEBRAL DISCITIS [None]
  - NERVE COMPRESSION [None]
  - OSTEOARTHRITIS [None]
  - OSTEONECROSIS [None]
  - SLEEP DISORDER [None]
